FAERS Safety Report 15155413 (Version 1)
Quarter: 2018Q3

REPORT INFORMATION
  Report Type: Spontaneous
  Country: SE (occurrence: SE)
  Receive Date: 20180717
  Receipt Date: 20180717
  Transmission Date: 20181010
  Serious: Yes (Other)
  Sender: FDA-Public Use
  Company Number: SE-ARALEZ PHARMACEUTICALS R+D INC.-2018-ARA-001779

PATIENT
  Sex: Female

DRUGS (3)
  1. FELODIPINE. [Suspect]
     Active Substance: FELODIPINE
     Indication: HYPERTENSION
     Dosage: UNK
     Route: 048
  2. METOPROLOL SUCCINATE. [Suspect]
     Active Substance: METOPROLOL SUCCINATE
     Dosage: UNK
     Route: 048
  3. METOPROLOL SUCCINATE. [Suspect]
     Active Substance: METOPROLOL SUCCINATE
     Indication: HYPERTENSION
     Dosage: UNK MG, UNK
     Route: 048
     Dates: start: 1993

REACTIONS (9)
  - Circumstance or information capable of leading to medication error [None]
  - Blood pressure increased [Unknown]
  - Medication residue present [Unknown]
  - Rectal cancer [Unknown]
  - Angiopathy [Unknown]
  - Diplopia [Unknown]
  - Headache [Unknown]
  - Flushing [Unknown]
  - Colon neoplasm [Unknown]

NARRATIVE: CASE EVENT DATE: 2012
